FAERS Safety Report 16035424 (Version 4)
Quarter: 2020Q3

REPORT INFORMATION
  Report Type: Spontaneous
  Country: US (occurrence: US)
  Receive Date: 20190305
  Receipt Date: 20200812
  Transmission Date: 20201102
  Serious: Yes (Hospitalization)
  Sender: FDA-Public Use
  Company Number: US-SA-2019SA059681

PATIENT

DRUGS (1)
  1. TOUJEO [Suspect]
     Active Substance: INSULIN GLARGINE
     Indication: TYPE 2 DIABETES MELLITUS
     Dosage: 20 U, QD
     Route: 065
     Dates: start: 2018

REACTIONS (5)
  - Incorrect dose administered by device [Unknown]
  - Blood glucose fluctuation [Unknown]
  - Product storage error [Unknown]
  - Unevaluable event [Unknown]
  - Device operational issue [Unknown]

NARRATIVE: CASE EVENT DATE: 20200717
